FAERS Safety Report 8241374-3 (Version None)
Quarter: 2012Q1

REPORT INFORMATION
  Report Type: 
  Country: None (occurrence: None)
  Receive Date: 20120328
  Receipt Date: 20120327
  Transmission Date: 20120608
  Serious: Yes (Other)
  Sender: FDA-Public Use
  Company Number: GXKR2012DE001249

PATIENT
  Age: 13 Year
  Sex: Female
  Weight: 38.5 kg

DRUGS (4)
  1. OMEPRAZOLE [Concomitant]
     Indication: JUVENILE ARTHRITIS
     Dosage: 20 MG, QW
     Route: 048
     Dates: start: 20100501
  2. FOLSAEURE ^HEVERT^ [Concomitant]
     Indication: JUVENILE ARTHRITIS
     Dosage: 5 MG, QW
     Route: 048
     Dates: start: 20100501
  3. METHOTREXATE [Suspect]
     Indication: JUVENILE ARTHRITIS
     Dosage: 20 MG, QW
     Route: 048
     Dates: start: 20100501
  4. ENBREL [Concomitant]
     Indication: JUVENILE ARTHRITIS
     Dosage: 25 MG EVERY 5 DAYS
     Route: 058
     Dates: start: 20110601

REACTIONS (1)
  - BLOOD THYROID STIMULATING HORMONE INCREASED [None]
